FAERS Safety Report 4629278-6 (Version None)
Quarter: 2005Q2

REPORT INFORMATION
  Report Type: 
  Country: None (occurrence: None)
  Receive Date: 20050404
  Receipt Date: 20050404
  Transmission Date: 20051028
  Serious: Yes (Other)
  Sender: FDA-Public Use
  Company Number: None

PATIENT
  Age: 34 Year
  Sex: Male
  Weight: 77.1115 kg

DRUGS (3)
  1. GABAPENTIN [Suspect]
     Indication: RADICULITIS LUMBOSACRAL
     Dosage: 300 MG PO
     Route: 048
     Dates: start: 20050105
  2. CELEBREX [Concomitant]
  3. FLEXERIL [Concomitant]

REACTIONS (1)
  - ATRIAL FIBRILLATION [None]
